FAERS Safety Report 4402128-9 (Version None)
Quarter: 2004Q3

REPORT INFORMATION
  Report Type: 
  Country: None (occurrence: None)
  Receive Date: 20040719
  Receipt Date: 20040719
  Transmission Date: 20050211
  Serious: Yes (Other)
  Sender: FDA-Public Use
  Company Number: None

PATIENT
  Sex: Female
  Weight: 69.2 kg

DRUGS (1)
  1. NEUPOGEN [Suspect]
     Indication: NEUTROPENIA
     Dosage: 345 MCG IV X 1 OVER 30 MINUTES
     Route: 042

REACTIONS (3)
  - CHEST PAIN [None]
  - FEBRILE NEUTROPENIA [None]
  - FLANK PAIN [None]
